FAERS Safety Report 12166084 (Version 1)
Quarter: 2016Q1

REPORT INFORMATION
  Report Type: Spontaneous
  Country: US (occurrence: US)
  Receive Date: 20160309
  Receipt Date: 20160309
  Transmission Date: 20160526
  Serious: No
  Sender: FDA-Public Use
  Company Number: US-PERRIGO-16US000119

PATIENT
  Age: 69 Year
  Sex: Male

DRUGS (1)
  1. ERYTHROMYCIN. [Suspect]
     Active Substance: ERYTHROMYCIN
     Indication: INGROWN HAIR
     Dosage: 1 TO 2 ML, PRN
     Route: 061
     Dates: start: 2013, end: 20160106

REACTIONS (3)
  - Off label use [Recovered/Resolved]
  - Expired product administered [Recovered/Resolved]
  - Aspartate aminotransferase increased [Unknown]

NARRATIVE: CASE EVENT DATE: 2013
